FAERS Safety Report 11749102 (Version 2)
Quarter: 2015Q4

REPORT INFORMATION
  Report Type: Report from Study
  Country: US (occurrence: US)
  Receive Date: 20151118
  Receipt Date: 20151221
  Transmission Date: 20160304
  Serious: No
  Sender: FDA-Public Use
  Company Number: US-AMGEN-USASL2015119974

PATIENT
  Age: 46 Year
  Sex: Female

DRUGS (1)
  1. ENBREL [Suspect]
     Active Substance: ETANERCEPT
     Indication: PSORIATIC ARTHROPATHY
     Dosage: 50 MG, QWK
     Route: 065
     Dates: start: 20151019

REACTIONS (10)
  - Nodule [Unknown]
  - Injection site erythema [Recovering/Resolving]
  - Paraesthesia [Unknown]
  - Injection site urticaria [Recovering/Resolving]
  - Injection site rash [Recovering/Resolving]
  - Injection site pain [Recovering/Resolving]
  - Injection site pruritus [Recovering/Resolving]
  - Pulmonary mass [Unknown]
  - Injection site bruising [Unknown]
  - Tenderness [Unknown]

NARRATIVE: CASE EVENT DATE: 2015
